FAERS Safety Report 14978124 (Version 1)
Quarter: 2018Q2

REPORT INFORMATION
  Report Type: Spontaneous
  Country: PL (occurrence: PL)
  Receive Date: 20180606
  Receipt Date: 20180606
  Transmission Date: 20180711
  Serious: Yes (Other)
  Sender: FDA-Public Use
  Company Number: PL-MERCK KGAA-2049065

PATIENT
  Age: 15 Year
  Sex: Female

DRUGS (1)
  1. NOVOTHYROX [Suspect]
     Active Substance: LEVOTHYROXINE SODIUM
     Indication: POST PROCEDURAL HYPOTHYROIDISM

REACTIONS (5)
  - Vascular injury [None]
  - Overweight [None]
  - Ovarian cyst [None]
  - Chest pain [None]
  - Vertigo [None]

NARRATIVE: CASE EVENT DATE: 2018
